FAERS Safety Report 5911447-6 (Version None)
Quarter: 2008Q4

REPORT INFORMATION
  Report Type: 
  Country: None (occurrence: None)
  Receive Date: 20081002
  Receipt Date: 20080725
  Transmission Date: 20090506
  Serious: Yes (Disabling)
  Sender: FDA-Public Use
  Company Number: APP200800701

PATIENT
  Sex: Male

DRUGS (4)
  1. BUPIVACAINE [Suspect]
     Indication: MUSCULOSKELETAL PAIN
     Dosage: CONTINUOUS VIA PAIN PUMP, INTRA-ARTERIAL, CONTINOUS VIA PAIN PUMP
     Route: 013
     Dates: start: 20050701
  2. BUPIVACAINE [Suspect]
     Indication: MUSCULOSKELETAL PAIN
     Dosage: CONTINUOUS VIA PAIN PUMP, INTRA-ARTERIAL, CONTINOUS VIA PAIN PUMP
     Route: 013
     Dates: start: 20060719
  3. STRYKER PAIN PUMP [Suspect]
     Indication: MUSCULOSKELETAL PAIN
     Dates: start: 20050701
  4. I' FLOW PAINBUSTER PAIN PUMP [Suspect]
     Indication: MUSCULOSKELETAL PAIN

REACTIONS (2)
  - CHONDROLYSIS [None]
  - MUSCULOSKELETAL PAIN [None]
